FAERS Safety Report 17570417 (Version 2)
Quarter: 2025Q2

REPORT INFORMATION
  Report Type: Report from Study
  Country: DE (occurrence: DE)
  Receive Date: 20200323
  Receipt Date: 20250410
  Transmission Date: 20250716
  Serious: Yes (Congenital Anomaly, Other)
  Sender: AUROBINDO
  Company Number: DE-AUROBINDO-AUR-APL-2020-015286

PATIENT
  Sex: Female

DRUGS (1)
  1. LOSARTAN [Suspect]
     Active Substance: LOSARTAN
     Indication: Product used for unknown indication
     Route: 064

REACTIONS (4)
  - Oligohydramnios [Unknown]
  - Foetal exposure during pregnancy [Unknown]
  - Foetal disorder [Unknown]
  - Foetal renal impairment [Unknown]
